FAERS Safety Report 9911553 (Version 1)
Quarter: 2014Q1

REPORT INFORMATION
  Report Type: Spontaneous
  Country: US (occurrence: US)
  Receive Date: 20140219
  Receipt Date: 20140219
  Transmission Date: 20141002
  Serious: Yes (Other)
  Sender: FDA-Public Use
  Company Number: PHHY2014US017332

PATIENT
  Age: 58 Year
  Sex: Female

DRUGS (1)
  1. OLANZAPINE [Suspect]

REACTIONS (4)
  - Hypersensitivity vasculitis [Unknown]
  - Macule [Unknown]
  - Rash erythematous [Recovering/Resolving]
  - Petechiae [Unknown]
